FAERS Safety Report 13900423 (Version 2)
Quarter: 2017Q4

REPORT INFORMATION
  Report Type: Spontaneous
  Country: US (occurrence: US)
  Receive Date: 20170823
  Receipt Date: 20171027
  Transmission Date: 20180320
  Serious: Yes (Other)
  Sender: FDA-Public Use
  Company Number: US-ALLERGAN-1747166US

PATIENT
  Age: 82 Year
  Sex: Female

DRUGS (4)
  1. RESTASIS [Suspect]
     Active Substance: CYCLOSPORINE
     Indication: DRY EYE
     Dosage: UNK, UNKNOWN
     Route: 047
  2. NATURAL TEARS [Concomitant]
     Active Substance: POLYVINYL ALCOHOL\POVIDONE
     Indication: DRY EYE
     Dosage: UNK UNK, UNKNOWN
     Route: 047
  3. TIMOLOL. [Concomitant]
     Active Substance: TIMOLOL
     Indication: GLAUCOMA
     Dosage: UNK UNK, UNKNOWN
     Route: 047
  4. MURO 128 [Concomitant]
     Active Substance: SODIUM CHLORIDE
     Indication: DRY EYE
     Dosage: UNK UNK, UNKNOWN
     Route: 047

REACTIONS (4)
  - Blindness unilateral [Not Recovered/Not Resolved]
  - Macular degeneration [Not Recovered/Not Resolved]
  - Eye haemorrhage [Recovered/Resolved]
  - Retinal detachment [Recovered/Resolved]

NARRATIVE: CASE EVENT DATE: 2015
